FAERS Safety Report 6669448-9 (Version None)
Quarter: 2010Q2

REPORT INFORMATION
  Report Type: 
  Country: None (occurrence: None)
  Receive Date: 20100406
  Receipt Date: 20100325
  Transmission Date: 20101027
  Serious: Yes (Hospitalization, Other)
  Sender: FDA-Public Use
  Company Number: PHHY2009JP54127

PATIENT
  Sex: Female

DRUGS (12)
  1. TASIGNA [Suspect]
     Indication: CHRONIC MYELOID LEUKAEMIA
     Dosage: 800 MG/DAY
     Route: 048
     Dates: start: 20090623, end: 20090706
  2. TASIGNA [Suspect]
     Dosage: 200 MG/DAY
     Route: 048
     Dates: start: 20090722, end: 20090807
  3. TASIGNA [Suspect]
     Dosage: 200 MG/DAY
     Route: 048
     Dates: start: 20090827, end: 20090911
  4. TASIGNA [Suspect]
     Dosage: 200 MG/DAY
     Route: 048
     Dates: start: 20090930, end: 20091103
  5. ALLOPURINOL [Suspect]
     Dosage: UNK
     Dates: end: 20090831
  6. ALLOPURINOL [Concomitant]
     Dosage: 300 MG, UNK
     Route: 048
     Dates: start: 20090618, end: 20090830
  7. KELNAC [Concomitant]
     Dosage: 240 MG, UNK
     Route: 048
     Dates: start: 20080101
  8. COVERSYL [Concomitant]
     Dosage: 4 MG, UNK
     Route: 048
     Dates: start: 20080101
  9. AMLODIPINE [Concomitant]
     Dosage: 2.5 MG, QD
     Route: 048
     Dates: start: 20090703
  10. GLYSENNID [Concomitant]
     Dosage: 12 MG, UNK
     Route: 048
     Dates: start: 20090630
  11. MAGNESIUM OXIDE [Concomitant]
     Dosage: 1 G, UNK
     Route: 048
     Dates: start: 20090711
  12. LANSOPRAZOLE [Concomitant]
     Indication: PROPHYLAXIS
     Dosage: 15 MG, UNK
     Route: 048
     Dates: start: 20090811

REACTIONS (6)
  - ANAEMIA [None]
  - HAEMOGLOBIN DECREASED [None]
  - INFECTION [None]
  - PLATELET COUNT DECREASED [None]
  - PYREXIA [None]
  - RASH ERYTHEMATOUS [None]
